FAERS Safety Report 5125305-0 (Version None)
Quarter: 2006Q4

REPORT INFORMATION
  Report Type: 
  Country: None (occurrence: None)
  Receive Date: 20061010
  Receipt Date: 20060928
  Transmission Date: 20070319
  Serious: Yes (Hospitalization)
  Sender: FDA-Public Use
  Company Number: 2006-05165

PATIENT
  Age: 31 Week
  Sex: Male

DRUGS (1)
  1. SULFASALAZINE [Suspect]
     Indication: COLITIS ULCERATIVE
     Dosage: 1 G, BID, TRANSPLACENTAL
     Route: 064

REACTIONS (4)
  - ANAEMIA NEONATAL [None]
  - DRUG EXPOSURE DURING PREGNANCY [None]
  - HAEMOLYTIC ANAEMIA [None]
  - PREMATURE BABY [None]
